FAERS Safety Report 8764494 (Version 1)
Quarter: 2012Q4

REPORT INFORMATION
  Report Type: Report from Study
  Country: DE (occurrence: DE)
  Receive Date: 20120831
  Receipt Date: 20120831
  Transmission Date: 20130627
  Serious: Yes (Hospitalization)
  Sender: FDA-Public Use
  Company Number: DE-ABBOTT-12P-062-0959943-00

PATIENT
  Age: 19 None
  Sex: Female

DRUGS (5)
  1. HUMIRA 40 MG/ 0.8 ML PRE-FILLED SYRINGE [Suspect]
     Indication: CROHN^S DISEASE
     Route: 058
     Dates: start: 20110801, end: 2012
  2. HUMIRA 40 MG/ 0.8 ML PRE-FILLED SYRINGE [Suspect]
     Dates: start: 2012, end: 201208
  3. REMICADE [Suspect]
     Indication: CROHN^S DISEASE
     Dates: start: 2012, end: 2012
  4. CORTISONE [Concomitant]
     Indication: CROHN^S DISEASE
  5. RECTAL FOAM [Concomitant]
     Indication: CROHN^S DISEASE
     Dosage: .

REACTIONS (7)
  - Depressed level of consciousness [Recovered/Resolved]
  - Crohn^s disease [Not Recovered/Not Resolved]
  - Drug ineffective [Unknown]
  - Pyrexia [Recovered/Resolved]
  - Tachycardia [Recovered/Resolved]
  - Vision blurred [Recovered/Resolved]
  - Chest discomfort [Recovered/Resolved]
